FAERS Safety Report 12004418 (Version 3)
Quarter: 2016Q1

REPORT INFORMATION
  Report Type: Spontaneous
  Country: FR (occurrence: FR)
  Receive Date: 20160204
  Receipt Date: 20160317
  Transmission Date: 20160526
  Serious: Yes (Other)
  Sender: FDA-Public Use
  Company Number: FR-TEVA-630075ISR

PATIENT
  Age: 67 Year
  Sex: Female

DRUGS (1)
  1. PROPRANOLOL TEVA 40MG [Suspect]
     Active Substance: PROPRANOLOL HYDROCHLORIDE
     Indication: HYPERTENSION
     Dosage: 1 DOSAGE FORMS DAILY;
     Route: 048
     Dates: start: 201511, end: 201601

REACTIONS (8)
  - Weight decreased [Recovering/Resolving]
  - Myositis [Recovering/Resolving]
  - Pericarditis [Recovering/Resolving]
  - Laryngeal disorder [Recovering/Resolving]
  - Oedema peripheral [Unknown]
  - Fatigue [Recovering/Resolving]
  - Myalgia [Recovering/Resolving]
  - Dyspnoea [Recovering/Resolving]

NARRATIVE: CASE EVENT DATE: 2015
